FAERS Safety Report 4302763-2 (Version None)
Quarter: 2004Q1

REPORT INFORMATION
  Report Type: 
  Country: None (occurrence: None)
  Receive Date: 20040224
  Receipt Date: 20030730
  Transmission Date: 20041129
  Serious: No
  Sender: FDA-Public Use
  Company Number: US-BRISTOL-MYERS SQUIBB COMPANY-12341798

PATIENT
  Sex: Female
  Weight: 50 kg

DRUGS (2)
  1. KENALOG-10 [Suspect]
     Indication: KELOID SCAR
     Dosage: NUMBER OF DOSAGES: PHYSICIAN INJECTED A KELOID WITH KENALOG-10 SEVERAL TIMES.
     Route: 023
  2. PRENATAL VITAMINS [Concomitant]

REACTIONS (1)
  - OLIGOMENORRHOEA [None]
